FAERS Safety Report 10193096 (Version 2)
Quarter: 2014Q2

REPORT INFORMATION
  Report Type: Spontaneous
  Country: US (occurrence: US)
  Receive Date: 20140524
  Receipt Date: 20140524
  Transmission Date: 20141212
  Serious: No
  Sender: FDA-Public Use
  Company Number: US-SANOFI-AVENTIS-2013SA002013

PATIENT
  Age: 75 Year
  Sex: Male

DRUGS (4)
  1. LANTUS SOLOSTAR [Suspect]
     Indication: TYPE 2 DIABETES MELLITUS
     Dosage: 36-40 UNITS DOSE:40 UNIT(S)
     Route: 051
  2. SOLOSTAR [Concomitant]
  3. AMARYL [Concomitant]
  4. METFORMIN [Concomitant]
     Route: 065

REACTIONS (2)
  - Memory impairment [Unknown]
  - Injection site pain [Unknown]
